FAERS Safety Report 16305402 (Version 1)
Quarter: 2019Q2

REPORT INFORMATION
  Report Type: Report from Study
  Country: TW (occurrence: TW)
  Receive Date: 20190513
  Receipt Date: 20190513
  Transmission Date: 20190711
  Serious: Yes (Death, Hospitalization)
  Sender: FDA-Public Use
  Company Number: TW-BAYER-2019-051030

PATIENT
  Age: 45 Year
  Sex: Male

DRUGS (9)
  1. CONCOR [Concomitant]
     Active Substance: BISOPROLOL FUMARATE
     Dosage: 1PC QD PO
     Route: 048
  2. ORFARIN [Concomitant]
     Active Substance: WARFARIN SODIUM
     Dosage: 0.5PC QD
     Route: 048
  3. PLAVIX [Concomitant]
     Active Substance: CLOPIDOGREL BISULFATE
     Dosage: 1# QD PO
     Route: 048
  4. VICTOZA [Concomitant]
     Active Substance: LIRAGLUTIDE
     Dosage: 0.6MG QD
  5. FEBURIC [Concomitant]
     Active Substance: FEBUXOSTAT
     Dosage: 0.5PC QD PO
     Route: 048
  6. MEGEST [MEGESTROL ACETATE] [Concomitant]
     Dosage: 10ML QD PO
     Route: 048
  7. ADEMPAS [Suspect]
     Active Substance: RIOCIGUAT
     Indication: PULMONARY HYPERTENSION
     Dosage: 2.5 MG, BID
     Route: 048
     Dates: start: 20161221
  8. ADEMPAS [Suspect]
     Active Substance: RIOCIGUAT
     Indication: PULMONARY HYPERTENSION
     Dosage: TAB 1PC TID
     Route: 048
  9. BURINEX [Concomitant]
     Active Substance: BUMETANIDE
     Dosage: 0.5PC QD PO
     Route: 048

REACTIONS (6)
  - Death [Fatal]
  - Epistaxis [Recovering/Resolving]
  - Contusion [Recovering/Resolving]
  - Faeces discoloured [Recovering/Resolving]
  - International normalised ratio increased [Recovered/Resolved]
  - Haemoptysis [Recovering/Resolving]

NARRATIVE: CASE EVENT DATE: 20190309
